FAERS Safety Report 6646200-1 (Version None)
Quarter: 2010Q1

REPORT INFORMATION
  Report Type: 
  Country: None (occurrence: None)
  Receive Date: 20100323
  Receipt Date: 20100316
  Transmission Date: 20100710
  Serious: Yes (Death, Other)
  Sender: FDA-Public Use
  Company Number: JP-ROCHE-683892

PATIENT
  Sex: Female

DRUGS (3)
  1. TOCILIZUMAB [Suspect]
     Indication: RHEUMATOID ARTHRITIS
     Route: 041
     Dates: start: 20090615, end: 20090615
  2. RHEUMATREX [Concomitant]
     Route: 048
     Dates: end: 20091103
  3. PREDNISOLONE [Concomitant]
     Dosage: FORM:PERORAL AGENT
     Route: 048
     Dates: end: 20091103

REACTIONS (2)
  - CARDIAC ARREST [None]
  - DECUBITUS ULCER [None]
